FAERS Safety Report 6754810-6 (Version None)
Quarter: 2010Q2

REPORT INFORMATION
  Report Type: 
  Country: None (occurrence: None)
  Receive Date: 20100527
  Receipt Date: 20100514
  Transmission Date: 20101027
  Serious: Yes (Congenital Anomaly)
  Sender: FDA-Public Use
  Company Number: 2010060761

PATIENT
  Sex: Female
  Weight: 2.2 kg

DRUGS (4)
  1. FRAGMIN [Suspect]
     Indication: COMPLICATION OF PREGNANCY
     Dosage: 5000 IU, TRANSPLACETNAL
     Route: 064
  2. VOLTAREN [Suspect]
     Dosage: 50 MG, 3X/DAY, TRANSPLACENTAL
     Route: 064
  3. TRANDATE [Suspect]
     Indication: HYPERTENSION
     Dosage: 100 MG, 2X/DAY, TRANSPLACENTAL
     Route: 064
  4. PARACET (PARACETAMOL) [Suspect]
     Dosage: 1 G, 3X/DAY, TRANSPLACETNAL
     Route: 064

REACTIONS (7)
  - ANAL ATRESIA [None]
  - BREECH PRESENTATION [None]
  - CAESAREAN SECTION [None]
  - CONGENITAL HAND MALFORMATION [None]
  - FOETAL GROWTH RETARDATION [None]
  - MATERNAL DRUGS AFFECTING FOETUS [None]
  - PREMATURE BABY [None]
